FAERS Safety Report 10351105 (Version 2)
Quarter: 2020Q3

REPORT INFORMATION
  Report Type: Spontaneous
  Country: GB (occurrence: GB)
  Receive Date: 20140730
  Receipt Date: 20200813
  Transmission Date: 20201102
  Serious: Yes (Other)
  Sender: FDA-Public Use
  Company Number: GB-ASTELLAS-2014EU010320

PATIENT
  Age: 67 Year
  Sex: Female

DRUGS (6)
  1. CITALOPRAM [Concomitant]
     Active Substance: CITALOPRAM HYDROBROMIDE
     Indication: ANXIETY
     Route: 048
     Dates: start: 20140429
  2. NAPROXEN. [Concomitant]
     Active Substance: NAPROXEN
     Indication: OSTEOARTHRITIS
     Route: 048
     Dates: start: 2011
  3. FELODIPINE. [Concomitant]
     Active Substance: FELODIPINE
     Indication: HYPERTENSION
     Route: 048
     Dates: start: 2005
  4. TRAMADOL. [Concomitant]
     Active Substance: TRAMADOL
     Indication: OSTEOARTHRITIS
     Route: 048
     Dates: start: 2007
  5. SOLIFENACIN [Suspect]
     Active Substance: SOLIFENACIN
     Indication: MICTURITION URGENCY
     Route: 048
     Dates: end: 20140427
  6. SOLIFENACIN [Suspect]
     Active Substance: SOLIFENACIN
     Route: 048
     Dates: start: 20140428, end: 20140602

REACTIONS (4)
  - Cough [Recovered/Resolved]
  - Salivary gland pain [Recovered/Resolved]
  - Oropharyngeal pain [Recovered/Resolved]
  - Salivary gland enlargement [Recovered/Resolved]

NARRATIVE: CASE EVENT DATE: 20140430
